FAERS Safety Report 14314664 (Version 1)
Quarter: 2017Q4

REPORT INFORMATION
  Report Type: Spontaneous
  Country: GB (occurrence: GB)
  Receive Date: 20171221
  Receipt Date: 20171221
  Transmission Date: 20180321
  Serious: Yes (Other)
  Sender: FDA-Public Use
  Company Number: PHHY2017GB187955

PATIENT
  Age: 83 Year
  Sex: Male

DRUGS (2)
  1. TEGRETOL [Suspect]
     Active Substance: CARBAMAZEPINE
     Indication: TRIGEMINAL NEURALGIA
     Dosage: 1200 MG, QD
     Route: 065
  2. TEGRETOL [Suspect]
     Active Substance: CARBAMAZEPINE
     Dosage: 600 MG, QD (1 AND A 1/2 TABLETS DAILY
     Route: 065

REACTIONS (4)
  - Cerebral disorder [Unknown]
  - Dyskinesia [Unknown]
  - Nasopharyngitis [Unknown]
  - Balance disorder [Unknown]

NARRATIVE: CASE EVENT DATE: 201711
